FAERS Safety Report 12721280 (Version 2)
Quarter: 2017Q1

REPORT INFORMATION
  Report Type: Spontaneous
  Country: US (occurrence: US)
  Receive Date: 20160907
  Receipt Date: 20170103
  Transmission Date: 20170428
  Serious: Yes (Other)
  Sender: FDA-Public Use
  Company Number: US-PFIZER INC-2016417084

PATIENT
  Sex: Female

DRUGS (1)
  1. LYRICA [Suspect]
     Active Substance: PREGABALIN
     Dosage: 7.5 MG, UNK
     Dates: start: 2012

REACTIONS (5)
  - Teeth brittle [Not Recovered/Not Resolved]
  - Tooth fracture [Unknown]
  - Hand fracture [Unknown]
  - Dementia [Unknown]
  - Toothache [Not Recovered/Not Resolved]
